FAERS Safety Report 9478401 (Version 2)
Quarter: 2013Q3

REPORT INFORMATION
  Report Type: Spontaneous
  Country: MY (occurrence: MY)
  Receive Date: 20130827
  Receipt Date: 20130912
  Transmission Date: 20140515
  Serious: Yes (Death)
  Sender: FDA-Public Use
  Company Number: MY-AMGEN-MYSSP2013059763

PATIENT
  Age: 50 Year
  Sex: Female

DRUGS (4)
  1. ENBREL [Suspect]
     Indication: RHEUMATOID ARTHRITIS
     Dosage: 50 MG, WEEKLY
     Route: 065
     Dates: start: 201302
  2. ARAVA [Concomitant]
     Dosage: 20 MG, 1X/DAY
  3. CELEBREX [Concomitant]
     Dosage: 200 MG, 2X/DAY
  4. RANITIDINE [Concomitant]
     Dosage: 150 MG, AS NEEDED

REACTIONS (1)
  - Acute pulmonary oedema [Fatal]
